FAERS Safety Report 4864071-0 (Version None)
Quarter: 2005Q4

REPORT INFORMATION
  Report Type: 
  Country: None (occurrence: None)
  Receive Date: 20051219
  Receipt Date: 20051206
  Transmission Date: 20060501
  Serious: Yes (Hospitalization)
  Sender: FDA-Public Use
  Company Number: 2005165601

PATIENT
  Age: 35 Year
  Sex: Female

DRUGS (1)
  1. ZITHROMAX [Suspect]
     Indication: COUGH
     Dosage: UNK (250 MG, UNKNOWN), ORAL
     Route: 048
     Dates: start: 20020201

REACTIONS (3)
  - GENERAL PHYSICAL HEALTH DETERIORATION [None]
  - MENINGITIS MENINGOCOCCAL [None]
  - PETECHIAE [None]
